FAERS Safety Report 17920058 (Version 1)
Quarter: 2020Q2

REPORT INFORMATION
  Report Type: Spontaneous
  Country: US (occurrence: US)
  Receive Date: 20200620
  Receipt Date: 20200620
  Transmission Date: 20200714
  Serious: Yes (Hospitalization)
  Sender: FDA-Public Use
  Company Number: US-EMCURE PHARMACEUTICALS LTD-2020-EPL-000750

PATIENT
  Age: 81 Year
  Sex: Male

DRUGS (3)
  1. RIFAMPIN. [Concomitant]
     Active Substance: RIFAMPIN
     Indication: ANTIBIOTIC THERAPY
     Dosage: 300 MILLIGRAM, BID (EVERY 12 HOURS)
     Route: 042
  2. VANCOMYCIN HYDROCHLORIDE. [Suspect]
     Active Substance: VANCOMYCIN HYDROCHLORIDE
     Indication: ANTIBIOTIC THERAPY
     Dosage: 1500 MILLIGRAM, BID (EVERY 12 HOURS)
     Route: 042
  3. CEFEPIME [Concomitant]
     Active Substance: CEFEPIME HYDROCHLORIDE
     Indication: ANTIBIOTIC THERAPY
     Dosage: 2000 MILLIGRAM, TID (EVERY 8 HOURS)
     Route: 042

REACTIONS (1)
  - Immune thrombocytopenia [Recovered/Resolved]
